FAERS Safety Report 4815504-7 (Version None)
Quarter: 2005Q4

REPORT INFORMATION
  Report Type: 
  Country: None (occurrence: None)
  Receive Date: 20051027
  Receipt Date: 20051020
  Transmission Date: 20060501
  Serious: Yes (Death)
  Sender: FDA-Public Use
  Company Number: NL-SOLVAY-00305003425

PATIENT
  Age: 88 Year
  Sex: Female

DRUGS (6)
  1. TEVETEN [Suspect]
     Indication: HYPERTENSION
     Dosage: 600 MILLIGRAM(S), ORAL
     Route: 048
     Dates: start: 20040817, end: 20040920
  2. PLAVIX [Concomitant]
  3. ACETOSAL (ACETYLSALICYLIC ACID) [Concomitant]
  4. DILTIAZEM HYDROCHLORIDE [Concomitant]
  5. ZOLOFT [Concomitant]
  6. HYDROCOBAMINE (HYDROXOCOBALAMIN HYDROCHLORIDE) [Concomitant]

REACTIONS (2)
  - BLOOD PRESSURE INCREASED [None]
  - PNEUMONIA [None]
